FAERS Safety Report 7053560-9 (Version None)
Quarter: 2010Q4

REPORT INFORMATION
  Report Type: 
  Country: None (occurrence: None)
  Receive Date: 20101013
  Receipt Date: 20101004
  Transmission Date: 20110411
  Serious: Yes (Other)
  Sender: FDA-Public Use
  Company Number: 2010SP048417

PATIENT
  Age: 26 Year
  Sex: Female
  Weight: 51 kg

DRUGS (2)
  1. GRACIAL (DESOGESTREL/ETHINYLESTRADIOL /00570801/) [Suspect]
     Indication: CONTRACEPTION
     Dosage: UNK;PO
     Route: 048
  2. NOVAMOX (AMOXICILLIN + CLAVULANIC ACID) (SPEKTRAMOX /02043401/) [Suspect]
     Indication: SINUSITIS
     Dosage: UNK;PO
     Route: 048
     Dates: start: 20100908

REACTIONS (4)
  - DRUG INTERACTION [None]
  - INAPPROPRIATE SCHEDULE OF DRUG ADMINISTRATION [None]
  - PNEUMONIA [None]
  - PRODUCT COLOUR ISSUE [None]
